FAERS Safety Report 21345020 (Version 1)
Quarter: 2022Q3

REPORT INFORMATION
  Report Type: Spontaneous
  Country: DE (occurrence: DE)
  Receive Date: 20220916
  Receipt Date: 20220916
  Transmission Date: 20221026
  Serious: Yes (Hospitalization)
  Sender: FDA-Public Use
  Company Number: None

PATIENT
  Age: 68 Year
  Sex: Male
  Weight: 96 kg

DRUGS (14)
  1. EDOXABAN [Suspect]
     Active Substance: EDOXABAN
     Indication: Product used for unknown indication
     Dosage: 60 MG, QD (60 MG, 1-0-0-0, TABLETS)
     Route: 048
  2. ASPIRIN [Suspect]
     Active Substance: ASPIRIN
     Indication: Product used for unknown indication
     Dosage: 100 MG, QD (100 MG, 1-0-0-0, TABLETS)
     Route: 048
  3. PREDNISOLONE [Concomitant]
     Active Substance: PREDNISOLONE
     Indication: Product used for unknown indication
     Dosage: 1 MG, QD (4-0-0-0, TABLETS)
     Route: 048
  4. FLUOXETINE HYDROCHLORIDE [Concomitant]
     Active Substance: FLUOXETINE HYDROCHLORIDE
     Indication: Product used for unknown indication
     Dosage: 0.5 DF, QD (20 MG, 0.5-0-0-0, TABLETS)
     Route: 048
  5. ETORICOXIB [Concomitant]
     Active Substance: ETORICOXIB
     Indication: Product used for unknown indication
     Dosage: UNK UNK, BID (90 MG, 2-0-2-0, TABLETS)
     Route: 048
  6. METOPROLOL [Concomitant]
     Active Substance: METOPROLOL
     Indication: Product used for unknown indication
     Dosage: 0.5 DF, QD (47.5 MG, 0.5-0-0-0, PROLONGED-RELEASE TABLETS)
     Route: 048
  7. DULOXETINE [Concomitant]
     Active Substance: DULOXETINE
     Indication: Product used for unknown indication
     Dosage: UNK, BID (60 MG, 1-1-0-0, EXTENDED-RELEASE CAPSULES)
     Route: 048
  8. ALLOPURINOL [Concomitant]
     Active Substance: ALLOPURINOL
     Indication: Product used for unknown indication
     Dosage: 0.5 DF, QD (300 MG, 0-0-0.5-0, TABLETS)
     Route: 048
  9. PANTOPRAZOLE [Concomitant]
     Active Substance: PANTOPRAZOLE
     Indication: Product used for unknown indication
     Dosage: UNK UNK, BID (40 MG, 1-0-1-0, PROLONGED-RELEASE TABLETS)
     Route: 048
  10. BUDESONIDE [Concomitant]
     Active Substance: BUDESONIDE
     Indication: Product used for unknown indication
     Dosage: 3 MG, QD (3 MG, 3-0-0-0, EXTENDED-RELEASE CAPSULES)
     Route: 048
  11. SACUBITRIL\VALSARTAN [Concomitant]
     Active Substance: SACUBITRIL\VALSARTAN
     Indication: Product used for unknown indication
     Dosage: UNK UNK, BID (2426 MG, 1-0-2-0, TABLETS)
     Route: 048
  12. TAMSULOSIN [Concomitant]
     Active Substance: TAMSULOSIN
     Indication: Product used for unknown indication
     Dosage: 0.4 MG, QD (0.4 MG, 1-0-0-0, PROLONGED-RELEASE TABLETS)
     Route: 048
  13. EPLERENONE [Concomitant]
     Active Substance: EPLERENONE
     Indication: Product used for unknown indication
     Dosage: 25 MG, QD (25 MG, 1-0-0-0, TABLETS)
     Route: 048
  14. PANCREATIN [Concomitant]
     Active Substance: PANCRELIPASE
     Indication: Product used for unknown indication
     Dosage: UNK UNK, BID (25000 IU, 0-1-1-0, EXTENDED-RELEASE CAPSULES)
     Route: 048

REACTIONS (2)
  - Cardiovascular disorder [Unknown]
  - Microcytic anaemia [Unknown]
